FAERS Safety Report 18501214 (Version 4)
Quarter: 2025Q2

REPORT INFORMATION
  Report Type: Spontaneous
  Country: SE (occurrence: UA)
  Receive Date: 20201113
  Receipt Date: 20250624
  Transmission Date: 20250716
  Serious: Yes (Life-Threatening, Hospitalization, Other)
  Sender: AUROBINDO
  Company Number: UA-MERCK-1205USA01914

PATIENT
  Age: 61 Year
  Sex: Female

DRUGS (7)
  1. VANCOMYCIN HYDROCHLORIDE [Suspect]
     Active Substance: VANCOMYCIN HYDROCHLORIDE
     Indication: Prophylaxis
     Route: 042
     Dates: start: 20120202, end: 20120223
  2. CIPROFLOXACIN [Suspect]
     Active Substance: CIPROFLOXACIN
     Indication: Prophylaxis
     Route: 042
     Dates: start: 20120202, end: 20120223
  3. CILASTATIN SODIUM\IMIPENEM [Suspect]
     Active Substance: CILASTATIN SODIUM\IMIPENEM
     Indication: Prophylaxis
     Route: 042
     Dates: start: 20120202, end: 20120223
  4. ZOVIRAX [Suspect]
     Active Substance: ACYCLOVIR
     Indication: Oral herpes
     Route: 042
     Dates: start: 20120220, end: 20120220
  5. CYTARABINE [Concomitant]
     Active Substance: CYTARABINE
     Indication: Acute myeloid leukaemia
     Dosage: 100 MILLIGRAM, ONCE A DAY
     Route: 058
     Dates: start: 20101026
  6. DAUNORUBICIN HYDROCHLORIDE [Concomitant]
     Active Substance: DAUNORUBICIN HYDROCHLORIDE
     Indication: Acute myeloid leukaemia
     Route: 042
     Dates: start: 20100826
  7. MYLOTARG [Concomitant]
     Active Substance: GEMTUZUMAB OZOGAMICIN
     Indication: Acute myeloid leukaemia
     Dosage: 9 MILLIGRAM/SQ. METER, ONCE A DAY
     Route: 042
     Dates: end: 20120229

REACTIONS (1)
  - Acute generalised exanthematous pustulosis [Recovered/Resolved]

NARRATIVE: CASE EVENT DATE: 20120224
